FAERS Safety Report 13731554 (Version 3)
Quarter: 2018Q1

REPORT INFORMATION
  Report Type: Report from Study
  Country: JP (occurrence: JP)
  Receive Date: 20170707
  Receipt Date: 20180227
  Transmission Date: 20180508
  Serious: No
  Sender: FDA-Public Use
  Company Number: JP-VIFOR (INTERNATIONAL) INC.-VIT-2017-07322

PATIENT
  Age: 87 Year
  Sex: Male
  Weight: 45 kg

DRUGS (17)
  1. LANDSEN [Concomitant]
     Active Substance: CLONAZEPAM
     Route: 048
  2. NESP [Concomitant]
     Active Substance: DARBEPOETIN ALFA
     Dates: start: 20170613
  3. PAEONIA LACTIFLORA ROOT [Concomitant]
     Active Substance: PAEONIA LACTIFLORA ROOT
     Route: 048
     Dates: start: 20170302
  4. FRANDOL [Concomitant]
     Active Substance: ISOSORBIDE DINITRATE
     Route: 050
  5. NESP [Concomitant]
     Active Substance: DARBEPOETIN ALFA
     Dates: end: 20170520
  6. AMLODIN [Concomitant]
     Active Substance: AMLODIPINE BESYLATE
     Route: 048
  7. PLETAAL OD [Concomitant]
     Active Substance: CILOSTAZOL
     Route: 048
  8. LENDORMIN D [Concomitant]
     Active Substance: BROTIZOLAM
     Indication: INSOMNIA
     Route: 048
  9. L-CARTIN [Concomitant]
     Active Substance: LEVOCARNITINE HYDROCHLORIDE
     Dates: start: 20170513
  10. NESP [Concomitant]
     Active Substance: DARBEPOETIN ALFA
     Dates: start: 20170530
  11. YOUPATCH [Concomitant]
     Indication: PAIN PROPHYLAXIS
     Dates: start: 20170225
  12. ALFACALCIDOL [Concomitant]
     Active Substance: ALFACALCIDOL
     Route: 048
  13. AMLODIN [Concomitant]
     Active Substance: AMLODIPINE BESYLATE
     Route: 048
     Dates: start: 20170225
  14. SENNARIDE [Concomitant]
     Active Substance: SENNOSIDES A AND B
     Route: 048
  15. DISTIGMINE BROMIDE [Concomitant]
     Active Substance: DISTIGMINE BROMIDE
     Route: 048
     Dates: end: 20170519
  16. VELPHORO [Suspect]
     Active Substance: FERRIC OXYHYDROXIDE
     Indication: HYPERPHOSPHATAEMIA
     Route: 048
     Dates: start: 20170211, end: 20170531
  17. URIEF [Concomitant]
     Active Substance: SILODOSIN
     Route: 048
     Dates: end: 20170509

REACTIONS (8)
  - Haematemesis [Recovered/Resolved]
  - Decreased appetite [Recovering/Resolving]
  - Nausea [Recovering/Resolving]
  - Constipation [Unknown]
  - Diarrhoea [Recovering/Resolving]
  - Duodenal ulcer [Recovered/Resolved]
  - Vomiting [Recovering/Resolving]
  - Faeces discoloured [Unknown]

NARRATIVE: CASE EVENT DATE: 20170502
